FAERS Safety Report 10371100 (Version 1)
Quarter: 2014Q1

REPORT INFORMATION
  Report Type: Spontaneous
  Country: US (occurrence: None)
  Receive Date: 20140306
  Receipt Date: 20140306
  Transmission Date: 20141002
  Serious: Yes (Hospitalization, Other)
  Sender: FDA-Public Use
  Company Number: 163-21880-13010257

PATIENT
  Age: 78 Year
  Sex: Male

DRUGS (2)
  1. REVLIMID (LENALIDOMIDE) (10 MILLIGRAM) [Suspect]
     Indication: PLASMA CELL MYELOMA
     Dosage: 10 MG, 28 IN 28 D
     Dates: start: 20121203
  2. VITAMIN D (ERGOCALCIFEROL) [Concomitant]

REACTIONS (4)
  - Asthenia [None]
  - Nausea [None]
  - Diarrhoea [None]
  - Dehydration [None]
